FAERS Safety Report 7503408-0 (Version None)
Quarter: 2011Q2

REPORT INFORMATION
  Report Type: 
  Country: None (occurrence: None)
  Receive Date: 20110525
  Receipt Date: 20110517
  Transmission Date: 20111010
  Serious: Yes (Life-Threatening)
  Sender: FDA-Public Use
  Company Number: B0719469A

PATIENT
  Age: 80 Year
  Sex: Male

DRUGS (6)
  1. LASIX [Concomitant]
     Route: 048
  2. ARIXTRA [Suspect]
     Dosage: 7.5MG PER DAY
     Route: 058
  3. LEVEMIR [Concomitant]
     Route: 058
  4. ASPIRIN [Concomitant]
     Route: 048
  5. BISOPROLOL FUMARATE [Concomitant]
     Route: 048
  6. CORDARONE [Concomitant]
     Route: 048

REACTIONS (3)
  - INJECTION SITE HAEMATOMA [None]
  - CARDIAC FAILURE [None]
  - SHOCK HAEMORRHAGIC [None]
